FAERS Safety Report 15307577 (Version 1)
Quarter: 2018Q3

REPORT INFORMATION
  Report Type: Spontaneous
  Country: US (occurrence: US)
  Receive Date: 20180822
  Receipt Date: 20180822
  Transmission Date: 20181010
  Serious: Yes (Other)
  Sender: FDA-Public Use
  Company Number: US-AKORN PHARMACEUTICALS-2018AKN01036

PATIENT
  Sex: Male
  Weight: 113.38 kg

DRUGS (1)
  1. MYORISAN [Suspect]
     Active Substance: ISOTRETINOIN
     Indication: ACNE
     Dosage: 30 MG, 2X/DAY
     Route: 048
     Dates: start: 20180424, end: 20180606

REACTIONS (2)
  - Mental status changes [Unknown]
  - Obsessive-compulsive symptom [Unknown]

NARRATIVE: CASE EVENT DATE: 2018
